FAERS Safety Report 13544059 (Version 1)
Quarter: 2017Q2

REPORT INFORMATION
  Report Type: Spontaneous
  Country: US (occurrence: US)
  Receive Date: 20170512
  Receipt Date: 20170512
  Transmission Date: 20170830
  Serious: Yes (Hospitalization, Disabling, Other)
  Sender: FDA-Public Use
  Company Number: None

PATIENT
  Age: 29 Year
  Sex: Female
  Weight: 87.4 kg

DRUGS (1)
  1. OXYTOCIN 20 UNITS/1000ML [Suspect]
     Active Substance: OXYTOCIN
     Indication: UTERINE ATONY
     Route: 041

REACTIONS (5)
  - Postpartum haemorrhage [None]
  - Uterine atony [None]
  - Exposure during pregnancy [None]
  - Hypovolaemic shock [None]
  - Caesarean section [None]

NARRATIVE: CASE EVENT DATE: 20170504
